FAERS Safety Report 11881720 (Version 1)
Quarter: 2015Q4

REPORT INFORMATION
  Report Type: Spontaneous
  Country: NL (occurrence: NL)
  Receive Date: 20151231
  Receipt Date: 20151231
  Transmission Date: 20160305
  Serious: Yes (Other)
  Sender: FDA-Public Use
  Company Number: NL-ASTRAZENECA-2015SF30423

PATIENT
  Sex: Male

DRUGS (1)
  1. ZOLADEX [Suspect]
     Active Substance: GOSERELIN ACETATE
     Route: 058

REACTIONS (5)
  - Malignant neoplasm progression [Unknown]
  - Renal disorder [Unknown]
  - Amnesia [Unknown]
  - Drug resistance [Unknown]
  - Memory impairment [Unknown]
